FAERS Safety Report 5472275-1 (Version None)
Quarter: 2007Q3

REPORT INFORMATION
  Report Type: 
  Country: None (occurrence: None)
  Receive Date: 20070927
  Receipt Date: 20070913
  Transmission Date: 20080115
  Serious: Yes (Other)
  Sender: FDA-Public Use
  Company Number: PAR_01733_2007

PATIENT
  Sex: Female
  Weight: 90.7194 kg

DRUGS (3)
  1. MEGACE ES [Suspect]
     Indication: DRUG USE FOR UNKNOWN INDICATION
     Dosage: TWO TEASPOONS ORAL, 1 TEASPOON ORAL
     Route: 048
     Dates: start: 20070401
  2. MEGACE ES [Suspect]
     Indication: DRUG USE FOR UNKNOWN INDICATION
     Dosage: TWO TEASPOONS ORAL, 1 TEASPOON ORAL
     Route: 048
     Dates: start: 20070501
  3. INSULIN [Concomitant]

REACTIONS (5)
  - BLOOD GLUCOSE INCREASED [None]
  - DRY SKIN [None]
  - HEADACHE [None]
  - INCORRECT DOSE ADMINISTERED [None]
  - VISUAL ACUITY REDUCED [None]
